FAERS Safety Report 6980992-7 (Version None)
Quarter: 2010Q3

REPORT INFORMATION
  Report Type: 
  Country: None (occurrence: None)
  Receive Date: 20100914
  Receipt Date: 20100906
  Transmission Date: 20110219
  Serious: Yes (Hospitalization)
  Sender: FDA-Public Use
  Company Number: B0674010A

PATIENT

DRUGS (3)
  1. CEFUROXIME [Suspect]
     Indication: PRODUCT USED FOR UNKNOWN INDICATION
     Route: 048
  2. VOLTAREN [Concomitant]
     Route: 048
  3. PL [Concomitant]
     Route: 048

REACTIONS (1)
  - DYSPNOEA [None]
